FAERS Safety Report 4336188-0 (Version None)
Quarter: 2004Q2

REPORT INFORMATION
  Report Type: 
  Country: None (occurrence: None)
  Receive Date: 20040407
  Receipt Date: 20040323
  Transmission Date: 20050107
  Serious: No
  Sender: FDA-Public Use
  Company Number: F02200400025

PATIENT
  Age: 84 Year
  Sex: Male

DRUGS (4)
  1. XATRAL - (ALFUZOSIN) - TABLET PR - 10 MG [Suspect]
     Indication: BENIGN PROSTATIC HYPERPLASIA
     Dosage: 10 MG OD, ORAL
     Route: 048
     Dates: start: 20010309
  2. CAPTEA (CAPTOPRIL, HYDROCHLOROTHIAZIDE) [Concomitant]
  3. TARKA [Concomitant]
  4. KARDEGIC (ACETYLOSALICYLATE LYSINE) [Concomitant]

REACTIONS (5)
  - CEREBROVASCULAR ACCIDENT [None]
  - GASTROINTESTINAL HAEMORRHAGE [None]
  - PROSTATE CANCER [None]
  - RENAL FAILURE [None]
  - URINARY RETENTION [None]
